FAERS Safety Report 10871831 (Version 1)
Quarter: 2015Q1

REPORT INFORMATION
  Report Type: Spontaneous
  Country: US (occurrence: None)
  Receive Date: 20150223
  Receipt Date: 20150223
  Transmission Date: 20150721
  Serious: Yes (Other)
  Sender: FDA-Public Use
  Company Number: None

PATIENT
  Age: 74 Year
  Sex: Male
  Weight: 68.04 kg

DRUGS (3)
  1. BUPROPION [Concomitant]
     Active Substance: BUPROPION
  2. ALLOPURINOL. [Concomitant]
     Active Substance: ALLOPURINOL
  3. TAMSULOSIN .4MG CAP. [Suspect]
     Active Substance: TAMSULOSIN
     Indication: PROSTATOMEGALY
     Dosage: 2 PILLS ONCE DAILY
     Route: 048
     Dates: start: 20150219, end: 20150220

REACTIONS (4)
  - Product quality issue [None]
  - Drug ineffective [None]
  - Product substitution issue [None]
  - Dysuria [None]

NARRATIVE: CASE EVENT DATE: 20150220
